FAERS Safety Report 9774877 (Version 1)
Quarter: 2013Q4

REPORT INFORMATION
  Report Type: Spontaneous
  Country: US (occurrence: US)
  Receive Date: 20131220
  Receipt Date: 20131220
  Transmission Date: 20140711
  Serious: No
  Sender: FDA-Public Use
  Company Number: US-GLAXOSMITHKLINE-A1005906A

PATIENT
  Age: 59 Year
  Sex: Male

DRUGS (3)
  1. AVODART [Suspect]
     Indication: PROSTATE CANCER
     Dosage: 1TAB IN THE MORNING
     Route: 048
     Dates: start: 201211
  2. RAPAFLO [Suspect]
     Indication: PROSTATE CANCER
     Dosage: 1TAB PER DAY
     Route: 048
     Dates: start: 201211
  3. AMLODIPINE [Concomitant]

REACTIONS (2)
  - Urine flow decreased [Not Recovered/Not Resolved]
  - Nocturia [Not Recovered/Not Resolved]
